FAERS Safety Report 18937393 (Version 1)
Quarter: 2021Q1

REPORT INFORMATION
  Report Type: Spontaneous
  Country: US (occurrence: US)
  Receive Date: 20210225
  Receipt Date: 20210225
  Transmission Date: 20210420
  Serious: No
  Sender: FDA-Public Use
  Company Number: US-ELI_LILLY_AND_COMPANY-US202102011735

PATIENT
  Age: 35 Year
  Sex: Female

DRUGS (1)
  1. LYUMJEV [Suspect]
     Active Substance: INSULIN LISPRO-AABC
     Indication: DIABETES MELLITUS
     Dosage: UNK, UNKNOWN
     Route: 058

REACTIONS (3)
  - Infusion site haemorrhage [Recovered/Resolved]
  - Wrong technique in product usage process [Recovered/Resolved]
  - Blood glucose decreased [Recovered/Resolved]
